FAERS Safety Report 4601377-4 (Version None)
Quarter: 2005Q1

REPORT INFORMATION
  Report Type: 
  Country: None (occurrence: None)
  Receive Date: 20050211
  Receipt Date: 20040323
  Transmission Date: 20050727
  Serious: Yes (Hospitalization, Other)
  Sender: FDA-Public Use
  Company Number: 200411058US

PATIENT
  Age: 39 Year
  Sex: Female
  Weight: 72.7 kg

DRUGS (8)
  1. ALLEGRA D TABLETS [Suspect]
     Indication: SINUSITIS
     Dosage: 60/120 MG ONCE PO
     Route: 048
     Dates: start: 20040210, end: 20040210
  2. AVELOX [Suspect]
     Indication: SINUSITIS
     Dosage: 400 MG QD PO
     Route: 048
     Dates: start: 20040209, end: 20040210
  3. ALLEGRA [Concomitant]
  4. PAXIL [Concomitant]
  5. KLONOPIN [Concomitant]
  6. PHENYLEPHRINE HYDROCHLORIDE, GUAIFENESIN, PHENYLPROPANOLAMINE HYDROCHL [Concomitant]
  7. PSEUDOEPHEDRINE HYDROCHLORIDE (SUDAFED) [Concomitant]
  8. CEFTIN [Concomitant]

REACTIONS (9)
  - EYE SWELLING [None]
  - HEADACHE [None]
  - HYPERSENSITIVITY [None]
  - OEDEMA PERIPHERAL [None]
  - RASH [None]
  - RASH PRURITIC [None]
  - SWELLING [None]
  - SWELLING FACE [None]
  - URTICARIA [None]
